FAERS Safety Report 25842226 (Version 1)
Quarter: 2025Q3

REPORT INFORMATION
  Report Type: Spontaneous
  Country: CO (occurrence: CO)
  Receive Date: 20250924
  Receipt Date: 20250924
  Transmission Date: 20251021
  Serious: Yes (Hospitalization)
  Sender: BIOMARIN
  Company Number: CO-BIOMARINAP-CO-2025-168842

PATIENT
  Age: 4 Year
  Sex: Female
  Weight: 13 kg

DRUGS (1)
  1. NAGLAZYME [Suspect]
     Active Substance: GALSULFASE
     Indication: Mucopolysaccharidosis VI
     Dosage: 13 MILLIGRAM, QW
     Dates: start: 20230628

REACTIONS (4)
  - Pneumonia [Recovering/Resolving]
  - Pyrexia [Recovering/Resolving]
  - White blood cell count increased [Recovering/Resolving]
  - Platelet count decreased [Recovering/Resolving]

NARRATIVE: CASE EVENT DATE: 20250912
